FAERS Safety Report 23608472 (Version 1)
Quarter: 2024Q1

REPORT INFORMATION
  Report Type: Other
  Country: GB (occurrence: GB)
  Receive Date: 20240307
  Receipt Date: 20240307
  Transmission Date: 20240409
  Serious: Yes (Death, Life-Threatening)
  Sender: FDA-Public Use
  Company Number: GB-MACLEODS PHARMACEUTICALS US LTD-MAC2024046180

PATIENT

DRUGS (1)
  1. MEMANTINE [Suspect]
     Active Substance: MEMANTINE
     Indication: Dementia
     Dosage: UNK (CAPSULE)
     Route: 065
     Dates: start: 20210408

REACTIONS (2)
  - Cardiac failure [Fatal]
  - Medication error [Unknown]

NARRATIVE: CASE EVENT DATE: 20240227
